FAERS Safety Report 5792363-X (Version None)
Quarter: 2008Q2

REPORT INFORMATION
  Report Type: 
  Country: None (occurrence: None)
  Receive Date: 20080623
  Receipt Date: 20080619
  Transmission Date: 20081010
  Serious: Yes (Other)
  Sender: FDA-Public Use
  Company Number: 2008SP010354

PATIENT
  Age: 22 Year
  Sex: Female

DRUGS (8)
  1. VIRAFERONPEG [Suspect]
     Indication: HEPATITIS C
  2. COPEGUS [Suspect]
     Indication: HEPATITIS C
  3. DEPAKENE [Suspect]
     Indication: EPILEPSY
     Dates: start: 19970101
  4. PAROXETINE HCL [Suspect]
     Indication: DRUG USE FOR UNKNOWN INDICATION
  5. LAMICTAL [Suspect]
     Indication: EPILEPSY
  6. LEVOTHYROX [Concomitant]
  7. DOLIPRANE [Concomitant]
  8. CYSTINE B6 [Concomitant]

REACTIONS (5)
  - DRUG EXPOSURE DURING PREGNANCY [None]
  - INDUCED LABOUR [None]
  - OLIGOHYDRAMNIOS [None]
  - PREGNANCY [None]
  - ULTRASOUND ANTENATAL SCREEN ABNORMAL [None]
